FAERS Safety Report 4872938-2 (Version None)
Quarter: 2006Q1

REPORT INFORMATION
  Report Type: 
  Country: None (occurrence: None)
  Receive Date: 20060105
  Receipt Date: 20050318
  Transmission Date: 20060701
  Serious: No
  Sender: FDA-Public Use
  Company Number: US-BRISTOL-MYERS SQUIBB COMPANY-12907580

PATIENT
  Age: 65 Year
  Sex: Female

DRUGS (1)
  1. SERZONE [Suspect]
     Indication: DEPRESSION

REACTIONS (6)
  - ALOPECIA [None]
  - AMNESIA [None]
  - ANOREXIA [None]
  - CHROMATURIA [None]
  - LIVER DISORDER [None]
  - WEIGHT DECREASED [None]
